FAERS Safety Report 7512206-3 (Version None)
Quarter: 2011Q2

REPORT INFORMATION
  Report Type: 
  Country: None (occurrence: None)
  Receive Date: 20110531
  Receipt Date: 20110125
  Transmission Date: 20111010
  Serious: Yes (Hospitalization)
  Sender: FDA-Public Use
  Company Number: US-BAYER-201038921NA

PATIENT
  Age: 49 Year
  Sex: Female
  Weight: 62.585 kg

DRUGS (4)
  1. NASAL PREPARATIONS [Concomitant]
  2. PROTONIX [Concomitant]
  3. CLARITIN [Concomitant]
  4. YASMIN [Suspect]
     Indication: CONTRACEPTION
     Dosage: UNK
     Route: 048
     Dates: start: 20030928, end: 20060427

REACTIONS (3)
  - PANCREATITIS [None]
  - CHOLECYSTITIS CHRONIC [None]
  - GALLBLADDER DISORDER [None]
